FAERS Safety Report 7854180 (Version 6)
Quarter: 2013Q1

REPORT INFORMATION
  Report Type: Spontaneous
  Country: US (occurrence: None)
  Receive Date: 20110218
  Receipt Date: 20130212
  Transmission Date: 20140127
  Serious: Yes (Disabling, Other)
  Sender: FDA-Public Use
  Company Number: CIP11000264

PATIENT
  Age: 61 Year
  Sex: Female
  Weight: 68 kg

DRUGS (11)
  1. ACTONEL [Suspect]
     Indication: OSTEOPENIA
     Route: 048
     Dates: start: 2008, end: 201101
  2. ACTONEL [Suspect]
     Route: 048
     Dates: start: 200305, end: 2008
  3. METHOTREXATE [Concomitant]
  4. LIPITOR [Concomitant]
  5. CALCIUM WITH VITAMIN D /00944201/ (CALCIUM CARBONATE, COLECALCIFEROL) [Concomitant]
  6. MICARDIS HCT [Concomitant]
  7. HYDROCHLOROTHIAZIDE (HYDROCHLOROTHIAZIDE) [Concomitant]
  8. ASPIRIN (ACETYLSALICYLIC ACID) [Concomitant]
  9. ZOLOFT [Concomitant]
  10. FOLIC ACID [Concomitant]
  11. NEXIUM /01479302/ (ESOMEPRAZOLE MAGNESIUM) [Concomitant]

REACTIONS (9)
  - Stress fracture [None]
  - Femur fracture [None]
  - Tibia fracture [None]
  - Pain in extremity [None]
  - Foot fracture [None]
  - Muscular weakness [None]
  - Bone pain [None]
  - Osteosclerosis [None]
  - Medial tibial stress syndrome [None]
